FAERS Safety Report 8340830-7 (Version None)
Quarter: 2012Q1

REPORT INFORMATION
  Report Type: 
  Country: None (occurrence: None)
  Receive Date: 20120329
  Receipt Date: 20090817
  Transmission Date: 20120608
  Serious: Yes (Other)
  Sender: FDA-Public Use
  Company Number: PHEH2009US09464

PATIENT
  Sex: Female

DRUGS (1)
  1. EXELON [Suspect]
     Dosage: 4.6 MG, TRANSDERMAL
     Route: 062

REACTIONS (3)
  - CONFUSIONAL STATE [None]
  - INSOMNIA [None]
  - HALLUCINATION [None]
